FAERS Safety Report 24798968 (Version 1)
Quarter: 2025Q1

REPORT INFORMATION
  Report Type: Spontaneous
  Country: GB (occurrence: GB)
  Receive Date: 20250102
  Receipt Date: 20250102
  Transmission Date: 20250408
  Serious: Yes (Other)
  Sender: REGENERON
  Company Number: GB-BAYER-2024A179147

PATIENT
  Age: 75 Year
  Sex: Female

DRUGS (3)
  1. EYLEA HD [Suspect]
     Active Substance: AFLIBERCEPT
     Indication: Product used for unknown indication
  2. EYLEA [Suspect]
     Active Substance: AFLIBERCEPT
     Indication: Product used for unknown indication
  3. BISOPROLOL [Concomitant]
     Active Substance: BISOPROLOL
     Indication: Product used for unknown indication

REACTIONS (7)
  - Arrhythmia [Unknown]
  - Seizure [Unknown]
  - Bradycardia [Unknown]
  - Amnesia [Unknown]
  - Confusional state [Unknown]
  - Speech disorder [Unknown]
  - Tachycardia [Unknown]
